FAERS Safety Report 5597885-2 (Version None)
Quarter: 2007Q4

REPORT INFORMATION
  Report Type: 
  Country: None (occurrence: None)
  Receive Date: 20071221
  Receipt Date: 20071030
  Transmission Date: 20080405
  Serious: Yes (Death, Other)
  Sender: FDA-Public Use
  Company Number: US200710007525

PATIENT
  Age: 63 Year
  Sex: Male

DRUGS (2)
  1. HUMALOG MIX 75/25 [Suspect]
  2. HUMULIN R [Suspect]

REACTIONS (4)
  - DEATH [None]
  - DYSPHAGIA [None]
  - LUNG NEOPLASM MALIGNANT [None]
  - THYROID CANCER [None]
